FAERS Safety Report 5470823-9 (Version None)
Quarter: 2007Q3

REPORT INFORMATION
  Report Type: 
  Country: None (occurrence: None)
  Receive Date: 20070925
  Receipt Date: 20070912
  Transmission Date: 20080115
  Serious: Yes (Death, Other)
  Sender: FDA-Public Use
  Company Number: 6038188

PATIENT
  Age: 82 Year

DRUGS (6)
  1. MELOXICAM [Suspect]
     Indication: PAIN
     Dosage: (1) ORAL
     Route: 048
     Dates: start: 20070330, end: 20070801
  2. CODEINE PHOSPHATE AND ACETAMINOPHEN [Concomitant]
  3. DIGOXIN [Concomitant]
  4. FOLIC ACID [Concomitant]
  5. OMEPRAZOLE [Concomitant]
  6. VITAMIN D [Concomitant]

REACTIONS (5)
  - ARTERIOSCLEROSIS [None]
  - ASPIRATION [None]
  - CORONARY ARTERY DISEASE [None]
  - INTESTINAL ISCHAEMIA [None]
  - PERICARDITIS [None]
